FAERS Safety Report 7100539-4 (Version None)
Quarter: 2010Q4

REPORT INFORMATION
  Report Type: 
  Country: None (occurrence: None)
  Receive Date: 20101113
  Receipt Date: 20100217
  Transmission Date: 20110411
  Serious: Yes (Other)
  Sender: FDA-Public Use
  Company Number: US-ALLERGAN-1002067US

PATIENT
  Age: 46 Year
  Sex: Male

DRUGS (1)
  1. BOTOXA? [Suspect]
     Indication: TORTICOLLIS
     Dosage: 200 UNITS, SINGLE
     Route: 030
     Dates: start: 20100205, end: 20100205

REACTIONS (2)
  - DYSPHAGIA [None]
  - DYSPNOEA [None]
